FAERS Safety Report 7481762-6 (Version None)
Quarter: 2011Q2

REPORT INFORMATION
  Report Type: 
  Country: None (occurrence: None)
  Receive Date: 20110516
  Receipt Date: 20110511
  Transmission Date: 20111010
  Serious: Yes (Other)
  Sender: FDA-Public Use
  Company Number: B0719193A

PATIENT
  Sex: Female

DRUGS (1)
  1. OMACOR [Suspect]
     Dosage: 2000MG PER DAY
     Route: 048

REACTIONS (1)
  - CORNEAL BLEEDING [None]
